FAERS Safety Report 7170485-9 (Version None)
Quarter: 2010Q4

REPORT INFORMATION
  Report Type: 
  Country: None (occurrence: None)
  Receive Date: 20101203
  Receipt Date: 20101125
  Transmission Date: 20110411
  Serious: Yes (Other)
  Sender: FDA-Public Use
  Company Number: DSM-2010-01611

PATIENT
  Age: 37 Year
  Sex: Male

DRUGS (2)
  1. CO-OLMETEC (HYDROCHLOROTHIAZIDE, OLMESARTAN MEDOXOMIL) (TABLET) [Suspect]
     Indication: HYPERTENSION
     Dosage: 20/12.5 MG, ORAL
     Route: 048
  2. AMLOR (AMLODIPINE BESILATE) (10 MILLIGRAM, TABLET) [Suspect]
     Indication: PRODUCT USED FOR UNKNOWN INDICATION
     Dosage: ORAL
     Route: 048

REACTIONS (1)
  - AZOOSPERMIA [None]
